FAERS Safety Report 20751621 (Version 1)
Quarter: 2022Q2

REPORT INFORMATION
  Report Type: Spontaneous
  Country: US (occurrence: US)
  Receive Date: 20220426
  Receipt Date: 20220426
  Transmission Date: 20220721
  Serious: No
  Sender: FDA-Public Use
  Company Number: US-PFIZER INC-202101036486

PATIENT
  Age: 66 Year
  Sex: Female
  Weight: 74.39 kg

DRUGS (1)
  1. METHOTREXATE SODIUM [Suspect]
     Active Substance: METHOTREXATE SODIUM
     Indication: Rheumatoid arthritis
     Dosage: 0.8 MG/ML (INJECTION ONCE A WEEK)

REACTIONS (1)
  - Drug ineffective [Not Recovered/Not Resolved]
